FAERS Safety Report 21359906 (Version 2)
Quarter: 2023Q4

REPORT INFORMATION
  Report Type: Spontaneous
  Country: AT (occurrence: AT)
  Receive Date: 20220921
  Receipt Date: 20231106
  Transmission Date: 20240109
  Serious: Yes (Hospitalization)
  Sender: FDA-Public Use
  Company Number: AT-ROCHE-2754571

PATIENT
  Age: 44 Year
  Sex: Female
  Weight: 65 kg

DRUGS (27)
  1. PACLITAXEL [Suspect]
     Active Substance: PACLITAXEL
     Indication: Breast cancer metastatic
     Dosage: MOST RECENT DOSE PRIOR TO AE 26/FEB/2020
     Route: 042
     Dates: start: 20181017, end: 20200226
  2. PERTUZUMAB [Suspect]
     Active Substance: PERTUZUMAB
     Indication: Breast cancer metastatic
     Dosage: MOST RECENT DOSE PRIOR TO AE 26/FEB/2020
     Route: 042
     Dates: start: 20181016, end: 20200226
  3. PERTUZUMAB [Suspect]
     Active Substance: PERTUZUMAB
     Dosage: MOST RECENT DOSE PRIOR TO AE 26/FEB/2020
     Route: 042
     Dates: start: 20181016
  4. LAPATINIB [Suspect]
     Active Substance: LAPATINIB
     Indication: Breast cancer metastatic
     Dosage: MOST RECENT DOSE PRIOR TO AE 4/AUG/2021
     Route: 048
     Dates: start: 20200715, end: 20210804
  5. ADO-TRASTUZUMAB EMTANSINE [Suspect]
     Active Substance: ADO-TRASTUZUMAB EMTANSINE
     Indication: Breast cancer metastatic
     Dosage: MOST RECENT DOSE ON 30/APR/2020
     Route: 042
     Dates: start: 20200227, end: 20200430
  6. ADO-TRASTUZUMAB EMTANSINE [Suspect]
     Active Substance: ADO-TRASTUZUMAB EMTANSINE
     Dosage: MOST RECENT DOSE ON 30/APR/2020
     Route: 042
     Dates: start: 20200227, end: 20200730
  7. DENOSUMAB [Suspect]
     Active Substance: DENOSUMAB
     Indication: Breast cancer metastatic
     Dosage: 120 MG/KG, 1, 4 WEEKS ?ROA-20066000
     Route: 058
     Dates: start: 20190326
  8. CAPECITABINE [Suspect]
     Active Substance: CAPECITABINE
     Indication: Breast cancer metastatic
     Dosage: 2000 MG, 1, 12 HOURS ?MOST RECENT DOSE PRIOR TO AE /SEP/2021??ROA-20053000?PDF-10219000
     Route: 048
     Dates: start: 20200715, end: 202109
  9. CAPECITABINE [Suspect]
     Active Substance: CAPECITABINE
     Dosage: 2000 MG, 1, 12 HOURS ?MOST RECENT DOSE PRIOR TO AE /SEP/2021??ROA-20053000?PDF-10219000
     Route: 048
     Dates: start: 20200715
  10. TRASTUZUMAB [Suspect]
     Active Substance: TRASTUZUMAB
     Indication: Breast cancer metastatic
     Dosage: 6 MG/KG 1, 3 WEEKS?MOST RECENT DOSE PRIOR TO AE 26/FEB/2020??ROA-20045000
     Route: 042
     Dates: start: 20181016
  11. TRASTUZUMAB [Suspect]
     Active Substance: TRASTUZUMAB
     Dosage: 6 MG/KG 1, 3 WEEKS?MOST RECENT DOSE PRIOR TO AE 26/FEB/2020??ROA-20045000
     Route: 042
     Dates: start: 20181016, end: 20200226
  12. RANITIDINE HYDROCHLORIDE [Concomitant]
     Active Substance: RANITIDINE HYDROCHLORIDE
     Indication: Product used for unknown indication
     Dosage: ONGOING = CHECKED
     Route: 065
     Dates: start: 20181017
  13. HYDROMORPHONE HYDROCHLORIDE [Concomitant]
     Active Substance: HYDROMORPHONE HYDROCHLORIDE
     Indication: Product used for unknown indication
     Dosage: ONGOING = CHECKED
     Dates: start: 20200826
  14. POLYETHYLENE GLYCOL 3350\POTASSIUM CHLORIDE\SODIUM BICARBONATE\SODIUM [Concomitant]
     Active Substance: POLYETHYLENE GLYCOL 3350\POTASSIUM CHLORIDE\SODIUM BICARBONATE\SODIUM CHLORIDE
     Indication: Product used for unknown indication
     Dosage: ONGOING = CHECKED
     Route: 065
     Dates: start: 20181023
  15. PARACODIN [DIHYDROCODEINE] [Concomitant]
     Indication: Product used for unknown indication
     Dosage: ONGOING = CHECKED
     Route: 065
     Dates: start: 20180715
  16. BUPRENORPHINE HYDROCHLORIDE [Concomitant]
     Active Substance: BUPRENORPHINE HYDROCHLORIDE
     Indication: Product used for unknown indication
     Dosage: ONGOING = CHECKED
     Route: 065
     Dates: start: 20181023
  17. LACTULOSE [Concomitant]
     Active Substance: LACTULOSE
     Indication: Product used for unknown indication
     Dosage: ONGOING = CHECKED
     Route: 065
     Dates: start: 20200826
  18. ZOFRAN [Concomitant]
     Active Substance: ONDANSETRON HYDROCHLORIDE
     Indication: Product used for unknown indication
     Dosage: ONGOING = CHECKED
     Route: 065
     Dates: start: 20181023
  19. DEXAMETHASONE [Concomitant]
     Active Substance: DEXAMETHASONE
     Indication: Product used for unknown indication
     Dosage: ONGOING = CHECKED
     Route: 065
     Dates: start: 20181017
  20. DIPHENHYDRAMINE HYDROCHLORIDE [Concomitant]
     Active Substance: DIPHENHYDRAMINE HYDROCHLORIDE
     Indication: Product used for unknown indication
     Dosage: ONGOING = CHECKED
  21. METOCLOPRAMIDE HYDROCHLORIDE [Concomitant]
     Active Substance: METOCLOPRAMIDE HYDROCHLORIDE
     Indication: Product used for unknown indication
     Dosage: ONGOING = CHECKED
     Route: 065
     Dates: start: 20181023
  22. CAPSAICIN [Concomitant]
     Active Substance: CAPSAICIN
     Indication: General physical health deterioration
     Dosage: ONGOING = NOT CHECKED
     Route: 065
     Dates: start: 20200826, end: 20200917
  23. EMEND [Concomitant]
     Active Substance: APREPITANT
     Indication: Product used for unknown indication
     Dosage: ONGOING = CHECKED
     Route: 065
     Dates: start: 20181120
  24. ZOFRAN [Concomitant]
     Active Substance: ONDANSETRON HYDROCHLORIDE
     Indication: Product used for unknown indication
     Dosage: ONGOING
     Route: 065
     Dates: start: 20181023
  25. NEURONTIN [Concomitant]
     Active Substance: GABAPENTIN
     Indication: Product used for unknown indication
     Dosage: ONGOING
     Route: 065
     Dates: start: 20181023, end: 20211027
  26. NOVALGIN [Concomitant]
     Indication: Product used for unknown indication
     Dosage: ONGOING
     Route: 065
     Dates: start: 20181023
  27. ASTEC [BUPRENORPHINE] [Concomitant]
     Indication: Product used for unknown indication
     Dosage: ONGOING
     Route: 065
     Dates: start: 20181023

REACTIONS (2)
  - General physical health deterioration [Recovered/Resolved]
  - Ejection fraction decreased [Recovered/Resolved]

NARRATIVE: CASE EVENT DATE: 20200806
